FAERS Safety Report 21050846 (Version 1)
Quarter: 2022Q3

REPORT INFORMATION
  Report Type: Report from Study
  Country: JP (occurrence: JP)
  Receive Date: 20220707
  Receipt Date: 20220707
  Transmission Date: 20221027
  Serious: Yes (Other)
  Sender: FDA-Public Use
  Company Number: JP-CELLTRION INC.-2022JP006368

PATIENT

DRUGS (18)
  1. INVESTIGATIONAL BIOSIMILARS [Suspect]
     Active Substance: INVESTIGATIONAL BIOSIMILARS
     Indication: HER2 positive gastric cancer
     Dosage: 370 MILLIGRAM, QD
     Route: 041
     Dates: start: 20220114, end: 20220114
  2. INVESTIGATIONAL BIOSIMILARS [Suspect]
     Active Substance: INVESTIGATIONAL BIOSIMILARS
     Dosage: 260 MILLIGRAM, QD
     Route: 041
     Dates: start: 20220204, end: 20220204
  3. INVESTIGATIONAL BIOSIMILARS [Suspect]
     Active Substance: INVESTIGATIONAL BIOSIMILARS
     Dosage: 260 MILLIGRAM, QD
     Route: 041
     Dates: start: 20220225, end: 20220225
  4. INVESTIGATIONAL BIOSIMILARS [Suspect]
     Active Substance: INVESTIGATIONAL BIOSIMILARS
     Dosage: 260 MILLIGRAM, QD
     Route: 041
     Dates: start: 20220318, end: 20220318
  5. INVESTIGATIONAL BIOSIMILARS [Suspect]
     Active Substance: INVESTIGATIONAL BIOSIMILARS
     Dosage: 260 MILLIGRAM, QD
     Route: 041
     Dates: start: 20220411, end: 20220411
  6. OXALIPLATIN [Suspect]
     Active Substance: OXALIPLATIN
     Indication: HER2 positive gastric cancer
     Dosage: 180 MILLIGRAM, QD
     Route: 041
     Dates: start: 20220114, end: 20220114
  7. OXALIPLATIN [Suspect]
     Active Substance: OXALIPLATIN
     Dosage: 170 MILLIGRAM, QD
     Route: 041
     Dates: start: 20220204, end: 20220204
  8. OXALIPLATIN [Suspect]
     Active Substance: OXALIPLATIN
     Dosage: 170 MILLIGRAM, QD
     Route: 041
     Dates: start: 20220225, end: 20220225
  9. OXALIPLATIN [Suspect]
     Active Substance: OXALIPLATIN
     Dosage: 170 MILLIGRAM, QD
     Route: 041
     Dates: start: 20220318, end: 20220318
  10. OXALIPLATIN [Suspect]
     Active Substance: OXALIPLATIN
     Dosage: 170 MILLIGRAM, QD
     Route: 041
     Dates: start: 20220411, end: 20220411
  11. GIMERACIL\OTERACIL\TEGAFUR [Suspect]
     Active Substance: GIMERACIL\OTERACIL\TEGAFUR
     Indication: HER2 positive gastric cancer
     Dosage: 100 MILLIGRAM, QD
     Route: 048
     Dates: start: 20220114, end: 20220127
  12. GIMERACIL\OTERACIL\TEGAFUR [Suspect]
     Active Substance: GIMERACIL\OTERACIL\TEGAFUR
     Dosage: 100 MILLIGRAM, QD
     Route: 048
     Dates: start: 20220204, end: 20220218
  13. GIMERACIL\OTERACIL\TEGAFUR [Suspect]
     Active Substance: GIMERACIL\OTERACIL\TEGAFUR
     Dosage: 100 MILLIGRAM, QD
     Route: 048
     Dates: start: 20220225, end: 20220310
  14. GIMERACIL\OTERACIL\TEGAFUR [Suspect]
     Active Substance: GIMERACIL\OTERACIL\TEGAFUR
     Dosage: 100 MILLIGRAM, QD
     Route: 048
     Dates: start: 20220318, end: 20220331
  15. GIMERACIL\OTERACIL\TEGAFUR [Suspect]
     Active Substance: GIMERACIL\OTERACIL\TEGAFUR
     Dosage: 100 MILLIGRAM, QD
     Route: 048
     Dates: start: 20220411, end: 20220425
  16. ELIQUIS [Concomitant]
     Active Substance: APIXABAN
     Indication: Pulmonary embolism
     Dosage: UNK
  17. VONOPRAZAN FUMARATE [Concomitant]
     Active Substance: VONOPRAZAN FUMARATE
     Indication: Prophylaxis against gastrointestinal ulcer
     Dosage: UNK
  18. LOXONIN [LOXOPROFEN SODIUM] [Concomitant]
     Indication: Product used for unknown indication
     Dosage: UNK
     Dates: start: 20220114

REACTIONS (4)
  - Neutropenia [Not Recovered/Not Resolved]
  - Thrombocytopenia [Not Recovered/Not Resolved]
  - Anaemia [Not Recovered/Not Resolved]
  - Underdose [Unknown]

NARRATIVE: CASE EVENT DATE: 20220203
